FAERS Safety Report 16121302 (Version 2)
Quarter: 2019Q2

REPORT INFORMATION
  Report Type: Spontaneous
  Country: PT (occurrence: PT)
  Receive Date: 20190327
  Receipt Date: 20190408
  Transmission Date: 20190711
  Serious: Yes (Disabling)
  Sender: FDA-Public Use
  Company Number: PT-ACCORD-115710

PATIENT
  Age: 57 Year
  Sex: Female

DRUGS (1)
  1. ANASTROZOL ACCORD [Suspect]
     Active Substance: ANASTROZOLE
     Indication: BREAST CANCER
     Route: 048
     Dates: start: 20180720, end: 20180808

REACTIONS (5)
  - Adverse reaction [Unknown]
  - Dizziness [Unknown]
  - Product substitution issue [Unknown]
  - Myalgia [Unknown]
  - Asthenia [Unknown]

NARRATIVE: CASE EVENT DATE: 20180720
